FAERS Safety Report 4874951-8 (Version None)
Quarter: 2006Q1

REPORT INFORMATION
  Report Type: 
  Country: None (occurrence: None)
  Receive Date: 20060105
  Receipt Date: 20051229
  Transmission Date: 20060701
  Serious: Yes (Other)
  Sender: FDA-Public Use
  Company Number: 200513982BCC

PATIENT
  Age: 10 Year
  Sex: Female
  Weight: 32.659 kg

DRUGS (1)
  1. RID SHAMPOO + CONDITIONER IN ONE [Suspect]
     Indication: LICE INFESTATION
     Dosage: ONCE, TOPICAL
     Route: 061
     Dates: start: 20051001

REACTIONS (2)
  - ACCIDENTAL EXPOSURE [None]
  - CHEMICAL BURNS OF EYE [None]
